FAERS Safety Report 8276579-9 (Version None)
Quarter: 2012Q2

REPORT INFORMATION
  Report Type: 
  Country: None (occurrence: None)
  Receive Date: 20120412
  Receipt Date: 20120404
  Transmission Date: 20120825
  Serious: Yes (Hospitalization, Other)
  Sender: FDA-Public Use
  Company Number: US-BAYER-2012-013599

PATIENT
  Age: 28 Year
  Sex: Female

DRUGS (1)
  1. MIRENA [Suspect]
     Indication: CONTRACEPTION
     Dosage: UNK
     Route: 015
     Dates: start: 20100901, end: 20120204

REACTIONS (10)
  - DISCOMFORT [None]
  - ECTOPIC PREGNANCY WITH INTRAUTERINE DEVICE [None]
  - DIZZINESS [None]
  - OVARIAN HAEMORRHAGE [None]
  - PERITONEAL HAEMORRHAGE [None]
  - LOSS OF CONSCIOUSNESS [None]
  - URINARY TRACT INFECTION [None]
  - URINARY RETENTION [None]
  - PAIN [None]
  - TUBAL RUPTURE [None]
